FAERS Safety Report 12798036 (Version 1)
Quarter: 2016Q3

REPORT INFORMATION
  Report Type: Spontaneous
  Country: US (occurrence: US)
  Receive Date: 20160929
  Receipt Date: 20160929
  Transmission Date: 20161109
  Serious: Yes (Disabling, Other)
  Sender: FDA-Public Use
  Company Number: None

PATIENT
  Sex: Male
  Weight: 90 kg

DRUGS (3)
  1. FISH OIL [Concomitant]
     Active Substance: FISH OIL
  2. MULTI VITAMIN [Concomitant]
     Active Substance: VITAMINS
  3. TRANSDERM SCOP [Suspect]
     Active Substance: SCOPOLAMINE
     Indication: NAUSEA
     Dosage: ?          QUANTITY:1 PATCH(ES);OTHER FREQUENCY:72;?
     Route: 062

REACTIONS (15)
  - Dysuria [None]
  - Confusional state [None]
  - Paranoia [None]
  - Hypersomnia [None]
  - Nausea [None]
  - Unevaluable event [None]
  - Diplopia [None]
  - Vertigo [None]
  - Gait disturbance [None]
  - Skin irritation [None]
  - Hyperhidrosis [None]
  - Feeling abnormal [None]
  - Hyperacusis [None]
  - Dizziness [None]
  - Balance disorder [None]
